FAERS Safety Report 5831654-0 (Version None)
Quarter: 2008Q3

REPORT INFORMATION
  Report Type: 
  Country: None (occurrence: None)
  Receive Date: 20080730
  Receipt Date: 20080716
  Transmission Date: 20090109
  Serious: Yes (Death, Hospitalization)
  Sender: FDA-Public Use
  Company Number: 2008AL008542

PATIENT
  Age: 96 Year
  Sex: Female
  Weight: 54.4316 kg

DRUGS (1)
  1. DIGOXIN [Suspect]
     Indication: CEREBROVASCULAR ACCIDENT
     Dosage: 0.125 MG, 10 TABS/WK, PO
     Route: 048
     Dates: start: 19940815, end: 20080131

REACTIONS (1)
  - GENERAL PHYSICAL HEALTH DETERIORATION [None]
